FAERS Safety Report 15525173 (Version 1)
Quarter: 2018Q4

REPORT INFORMATION
  Report Type: Spontaneous
  Country: US (occurrence: US)
  Receive Date: 20181018
  Receipt Date: 20181018
  Transmission Date: 20190205
  Serious: No
  Sender: FDA-Public Use
  Company Number: US-BRISTOL-MYERS SQUIBB COMPANY-BMS-2018-097601

PATIENT
  Sex: Male

DRUGS (1)
  1. METFORMIN HYDROCHLORIDE. [Suspect]
     Active Substance: METFORMIN HYDROCHLORIDE
     Indication: TYPE 2 DIABETES MELLITUS
     Dosage: 240 MG, BID
     Route: 048
     Dates: start: 201801, end: 201802

REACTIONS (3)
  - Diarrhoea [Recovered/Resolved]
  - Rash pruritic [Recovered/Resolved]
  - Underdose [Unknown]
